FAERS Safety Report 21700958 (Version 2)
Quarter: 2022Q4

REPORT INFORMATION
  Report Type: Spontaneous
  Country: FR (occurrence: FR)
  Receive Date: 20221208
  Receipt Date: 20221216
  Transmission Date: 20230112
  Serious: Yes (Hospitalization)
  Sender: FDA-Public Use
  Company Number: None

PATIENT
  Age: 75 Year
  Sex: Male
  Weight: 78 kg

DRUGS (10)
  1. AMOXICILLIN [Interacting]
     Active Substance: AMOXICILLIN
     Indication: Post procedural infection
     Dosage: UNIT DOSE :6GRAM,FREQUENCY TIME :1 DAYS, DURATION :8 DAYS
     Dates: start: 20220124, end: 20220201
  2. RAMIPRIL [Interacting]
     Active Substance: RAMIPRIL
     Indication: Hypertension
     Dosage: UNIT DOSE :2.5MG,FREQUENCY TIME:1 DAYS, DURATION :6 DAYS
     Dates: start: 20220126, end: 20220201
  3. MONTELUKAST SODIUM [Concomitant]
     Active Substance: MONTELUKAST SODIUM
     Indication: Product used for unknown indication
     Dosage: THERAPY START DATE :ASKU,UNIT DOSE:10MG,FREQUENCY TIME:1 DAYS
  4. ATORVASTATIN [Concomitant]
     Active Substance: ATORVASTATIN
     Indication: Product used for unknown indication
     Dosage: THERAPY START DATE :ASKU,UNIT DOSE :40MG,FREQUENCY TIME :1 DAYS
  5. KARDEGIC [Concomitant]
     Active Substance: ASPIRIN DL-LYSINE
     Indication: Product used for unknown indication
     Dosage: 75 MG, POWDER FOR ORAL SOLUTION IN SACHET-DOSE,THERAPY START DATE :ASKU,UNIT DOSE :75MG,FREQUENCY TI
  6. DAPTOMYCIN [Concomitant]
     Active Substance: DAPTOMYCIN
     Indication: Product used for unknown indication
     Dosage: UNIT DOSE:500MG,FREQUENCY TIME :1 DAYS
     Dates: start: 20220120
  7. BISOPROLOL [Concomitant]
     Active Substance: BISOPROLOL
     Indication: Product used for unknown indication
     Dosage: 5 MG, SCORED FILM-COATED TABLET,THERAPY START DATE :ASKU,UNIT DOSE: 1 DOSAGE FORM, FREQUENCY TIME :1
  8. PREDNISONE [Concomitant]
     Active Substance: PREDNISONE
     Indication: Product used for unknown indication
     Dosage: THERAPY START DATE :ASKU,UNIT DOSE :10MG,FREQUENCY TIME :1 DAYS
     Dates: end: 20220131
  9. SERETIDE [Concomitant]
     Active Substance: FLUTICASONE PROPIONATE\SALMETEROL XINAFOATE
     Indication: Product used for unknown indication
     Dosage: 500/50 MICROGRAMS/DOSE,IN A SINGLE-DOSE CONTAINER,THERAPY START DATE :ASKU,UNIT DOSE :2 DOSAGE FORM,
  10. LANSOPRAZOLE [Concomitant]
     Active Substance: LANSOPRAZOLE
     Indication: Product used for unknown indication
     Dosage: UNIT DOSE :15MG,FREQUENCY TIME :1 DAYS,THERAPY START DATE :ASKU

REACTIONS (2)
  - Acute kidney injury [Recovered/Resolved]
  - Drug interaction [Unknown]

NARRATIVE: CASE EVENT DATE: 20220131
